FAERS Safety Report 24605203 (Version 1)
Quarter: 2024Q4

REPORT INFORMATION
  Report Type: Spontaneous
  Country: FR (occurrence: FR)
  Receive Date: 20241111
  Receipt Date: 20241111
  Transmission Date: 20250114
  Serious: Yes (Hospitalization)
  Sender: TEVA
  Company Number: None

PATIENT
  Age: 63 Year
  Sex: Female
  Weight: 61 kg

DRUGS (2)
  1. PACLITAXEL [Suspect]
     Active Substance: PACLITAXEL
     Indication: Metastatic squamous cell carcinoma
     Dosage: C1J8, DOSAGE UNKNOWN
     Route: 042
     Dates: start: 20230512, end: 20230512
  2. CARBOPLATIN [Concomitant]
     Active Substance: CARBOPLATIN
     Indication: Product used for unknown indication
     Dosage: CARBOPLATINE MEDAC
     Route: 065

REACTIONS (1)
  - Anaphylactic reaction [Recovered/Resolved]

NARRATIVE: CASE EVENT DATE: 20230512
